FAERS Safety Report 18690617 (Version 1)
Quarter: 2021Q1

REPORT INFORMATION
  Report Type: Spontaneous
  Country: US (occurrence: US)
  Receive Date: 20210101
  Receipt Date: 20210101
  Transmission Date: 20210419
  Serious: No
  Sender: FDA-Public Use
  Company Number: US-BIOVITRUM-2020US8099

PATIENT
  Sex: Male
  Weight: 11 kg

DRUGS (6)
  1. TACROLIMUS LACTOSE [Concomitant]
     Dosage: ORA PLUS
  2. SIMPLE SYRUP [Concomitant]
     Dosage: USP
  3. SYNAGIS [Suspect]
     Active Substance: PALIVIZUMAB
     Indication: BRONCHOPULMONARY DYSPLASIA
  4. SIROLIMUS. [Concomitant]
     Active Substance: SIROLIMUS
  5. SYNAGIS [Suspect]
     Active Substance: PALIVIZUMAB
     Indication: NEONATAL ASPIRATION
     Route: 030
  6. EPINEPHRINE HCL [Concomitant]
     Active Substance: EPINEPHRINE

REACTIONS (2)
  - Off label use [Unknown]
  - Weight decreased [Not Recovered/Not Resolved]
